FAERS Safety Report 8563449-1 (Version None)
Quarter: 2012Q3

REPORT INFORMATION
  Report Type: 
  Country: None (occurrence: None)
  Receive Date: 20120802
  Receipt Date: 20120723
  Transmission Date: 20120928
  Serious: No
  Sender: FDA-Public Use
  Company Number: US-009507513-1207USA011319

PATIENT

DRUGS (11)
  1. CODEINE [Suspect]
  2. ENALAPRIL MALEATE [Suspect]
     Dosage: UNK
     Route: 048
  3. ZOCOR [Suspect]
     Dosage: UNK
     Route: 048
  4. FOSAMAX [Suspect]
     Dosage: UNK
     Route: 048
  5. PENICILLIN G POTASSIUM [Suspect]
  6. PRAVASTATIN SODIUM [Suspect]
  7. NEURONTIN [Suspect]
  8. PROCARDIA [Suspect]
  9. CRESTOR [Suspect]
  10. AMOXICILLIN [Suspect]
  11. KLONOPIN [Suspect]

REACTIONS (1)
  - DRUG HYPERSENSITIVITY [None]
